FAERS Safety Report 25078904 (Version 3)
Quarter: 2025Q1

REPORT INFORMATION
  Report Type: Report from Study
  Country: ES (occurrence: ES)
  Receive Date: 20250314
  Receipt Date: 20250323
  Transmission Date: 20250409
  Serious: Yes (Other)
  Sender: TRAVERE THERAPEUTICS
  Company Number: ES-BEH-2025198534

PATIENT
  Age: 39 Year
  Sex: Male
  Weight: 90 kg

DRUGS (5)
  1. FILSPARI [Suspect]
     Active Substance: SPARSENTAN
     Indication: IgA nephropathy
     Route: 065
     Dates: start: 202405
  2. FILSPARI [Suspect]
     Active Substance: SPARSENTAN
     Route: 065
  3. FILSPARI [Suspect]
     Active Substance: SPARSENTAN
     Route: 065
  4. PITAVASTATIN [Suspect]
     Active Substance: PITAVASTATIN
  5. DIAZEPAM [Concomitant]
     Active Substance: DIAZEPAM

REACTIONS (6)
  - Hepatotoxicity [Unknown]
  - Jaundice [Unknown]
  - Hepatitis [Unknown]
  - Hepatobiliary disease [Unknown]
  - Alanine aminotransferase increased [Unknown]
  - Aspartate aminotransferase increased [Unknown]
